FAERS Safety Report 5201372-0 (Version None)
Quarter: 2006Q4

REPORT INFORMATION
  Report Type: 
  Country: None (occurrence: None)
  Receive Date: 20061016
  Receipt Date: 20051021
  Transmission Date: 20070319
  Serious: Yes (Other)
  Sender: FDA-Public Use
  Company Number: 2005116270

PATIENT
  Age: 54 Year
  Sex: Male
  Weight: 88.4514 kg

DRUGS (5)
  1. NEURONTIN [Suspect]
     Indication: NEURALGIA
     Dosage: 900 MG (300 MG, 1 IN 1 D), ORAL
     Route: 048
  2. XANAX [Concomitant]
  3. CYMBALTA [Concomitant]
  4. OPOIDS (OPOIDS) [Concomitant]
  5. ALL OTHER THERAPEUTIC PRODUCTS (ALL OTHER THERAPEUTIC PRODUCTS [Suspect]

REACTIONS (3)
  - DRUG INEFFECTIVE [None]
  - PAIN [None]
  - SOMNOLENCE [None]
